APPROVED DRUG PRODUCT: PRUCALOPRIDE SUCCINATE
Active Ingredient: PRUCALOPRIDE SUCCINATE
Strength: EQ 1MG BASE
Dosage Form/Route: TABLET;ORAL
Application: A218177 | Product #001 | TE Code: AB
Applicant: MSN LABORATORIES PRIVATE LTD
Approved: Jun 24, 2025 | RLD: No | RS: No | Type: RX